FAERS Safety Report 8012312-3 (Version None)
Quarter: 2011Q4

REPORT INFORMATION
  Report Type: 
  Country: None (occurrence: None)
  Receive Date: 20111228
  Receipt Date: 20111223
  Transmission Date: 20120403
  Serious: Yes (Hospitalization)
  Sender: FDA-Public Use
  Company Number: US-PFIZER INC-2011312223

PATIENT
  Age: 74 Year
  Sex: Male
  Weight: 126 kg

DRUGS (6)
  1. VIDAZA [Suspect]
     Indication: ACUTE MYELOID LEUKAEMIA
     Dosage: 75 MG/M2/DAY SC OR IV ON DAYS 1-7
     Dates: start: 20110819
  2. VIDAZA [Suspect]
     Dosage: 75 MG/M2/DAY SC OR IV ON DAYS 1-7
     Dates: start: 20111025
  3. ZOLINZA [Suspect]
     Indication: ACUTE MYELOID LEUKAEMIA
     Dosage: 400 MG 1X/DAY ON DAYS 1-9
     Route: 048
     Dates: start: 20110819
  4. MYLOTARG [Suspect]
     Dosage: 3 MG/M2 OVER 2 HOURS ON DAYS 4 AND 8
     Route: 042
     Dates: start: 20111025
  5. ZOLINZA [Suspect]
     Dosage: 400 MG 1X/DAY ON DAYS 1-9
     Route: 048
     Dates: start: 20111025
  6. MYLOTARG [Suspect]
     Indication: ACUTE MYELOID LEUKAEMIA
     Dosage: 3 MG/M2 OVER 2 HOURS ON DAYS 4 AND 8
     Route: 042
     Dates: start: 20110819

REACTIONS (3)
  - DEHYDRATION [None]
  - DIARRHOEA [None]
  - PANCYTOPENIA [None]
